FAERS Safety Report 17401657 (Version 1)
Quarter: 2020Q1

REPORT INFORMATION
  Report Type: Spontaneous
  Country: IT (occurrence: IT)
  Receive Date: 20200211
  Receipt Date: 20200211
  Transmission Date: 20200409
  Serious: Yes (Other)
  Sender: FDA-Public Use
  Company Number: IT-SA-2020SA032356

PATIENT
  Age: 57 Year
  Sex: Male

DRUGS (9)
  1. TICHE [Concomitant]
  2. ZALTRAP [Suspect]
     Active Substance: ZIV-AFLIBERCEPT
     Dosage: 240 MG, QCY
     Route: 042
     Dates: start: 20191204, end: 20191204
  3. LANSOX [Concomitant]
     Active Substance: LANSOPRAZOLE
  4. TREDIMIN [Concomitant]
  5. FERROFOLIN [Concomitant]
     Dosage: UNK
  6. AMLODIPINE BESILATE/OLMESARTAN MEDOXOMIL [Suspect]
     Active Substance: AMLODIPINE BESYLATE\OLMESARTAN MEDOXOMIL
     Indication: HYPERTENSION
     Dosage: 1 DF, QD
     Route: 048
     Dates: start: 20170101, end: 20191215
  7. CARDIOASPIRIN [Concomitant]
     Active Substance: ASPIRIN
     Dosage: UNK
  8. ZALTRAP [Suspect]
     Active Substance: ZIV-AFLIBERCEPT
     Indication: RECTAL CANCER
     Dosage: 240 MG, QOW
     Route: 042
     Dates: start: 20170308, end: 20170308
  9. NATECAL D3 [Concomitant]
     Active Substance: CALCIUM CARBONATE\CHOLECALCIFEROL

REACTIONS (1)
  - Renal failure [Not Recovered/Not Resolved]

NARRATIVE: CASE EVENT DATE: 20191215
